FAERS Safety Report 9798834 (Version 1)
Quarter: 2014Q1

REPORT INFORMATION
  Report Type: Spontaneous
  Country: US (occurrence: US)
  Receive Date: 20140106
  Receipt Date: 20140106
  Transmission Date: 20141002
  Serious: No
  Sender: FDA-Public Use
  Company Number: US-GILEAD-2010-0033451

PATIENT
  Sex: Female

DRUGS (6)
  1. LETAIRIS [Suspect]
     Indication: PULMONARY ARTERIAL HYPERTENSION
     Route: 048
     Dates: start: 20070913, end: 20091110
  2. WARFARIN [Concomitant]
  3. FUROSEMIDE [Concomitant]
  4. ADVAIR [Concomitant]
  5. METHOTREXATE [Concomitant]
  6. RANITIDINE [Concomitant]

REACTIONS (1)
  - Headache [Unknown]
